FAERS Safety Report 21847912 (Version 1)
Quarter: 2023Q1

REPORT INFORMATION
  Report Type: Spontaneous
  Country: IR (occurrence: US)
  Receive Date: 20230111
  Receipt Date: 20230111
  Transmission Date: 20230417
  Serious: Yes (Hospitalization, Other)
  Sender: FDA-Public Use
  Company Number: IR-NOVAST LABORATORIES INC.-2022NOV000337

PATIENT
  Age: 36 Year
  Sex: Female

DRUGS (1)
  1. METFORMIN [Suspect]
     Active Substance: METFORMIN HYDROCHLORIDE
     Indication: Weight decreased
     Dosage: 500 MILLIGRAM, QD
     Route: 065

REACTIONS (9)
  - Toxicity to various agents [Recovered/Resolved]
  - Hyponatraemia [Recovered/Resolved]
  - Acute kidney injury [Recovered/Resolved]
  - Neuropathy peripheral [Recovered/Resolved]
  - Anaemia megaloblastic [Recovered/Resolved]
  - Pancytopenia [Recovered/Resolved]
  - Cardiogenic shock [Recovered/Resolved]
  - Overdose [Recovered/Resolved]
  - Product use in unapproved indication [Unknown]
